FAERS Safety Report 18110305 (Version 4)
Quarter: 2020Q4

REPORT INFORMATION
  Report Type: Spontaneous
  Country: US (occurrence: US)
  Receive Date: 20200804
  Receipt Date: 20201001
  Transmission Date: 20210113
  Serious: Yes (Hospitalization, Other)
  Sender: FDA-Public Use
  Company Number: US-LEXICON PHARMACEUTICALS, INC-20-1606-00620

PATIENT
  Age: 78 Year
  Sex: Female

DRUGS (3)
  1. XERMELO [Suspect]
     Active Substance: TELOTRISTAT ETHYL
     Indication: CARCINOID SYNDROME
     Dates: start: 20190926, end: 20200928
  2. SANDOSTATIN [Concomitant]
     Active Substance: OCTREOTIDE ACETATE
     Indication: PRODUCT USED FOR UNKNOWN INDICATION
     Route: 065
  3. AFINITOR [Suspect]
     Active Substance: EVEROLIMUS
     Indication: PRODUCT USED FOR UNKNOWN INDICATION
     Route: 048
     Dates: start: 20200723

REACTIONS (7)
  - Swelling face [Unknown]
  - Diarrhoea [Recovering/Resolving]
  - Swelling [Unknown]
  - Thrombosis [Unknown]
  - Somnolence [Recovering/Resolving]
  - Hospice care [Not Recovered/Not Resolved]
  - Peripheral swelling [Recovering/Resolving]
